FAERS Safety Report 16361443 (Version 1)
Quarter: 2019Q2

REPORT INFORMATION
  Report Type: Spontaneous
  Country: PR (occurrence: US)
  Receive Date: 20190528
  Receipt Date: 20190528
  Transmission Date: 20190711
  Serious: No
  Sender: FDA-Public Use
  Company Number: PR-PFIZER INC-2019218653

PATIENT
  Age: 67 Year
  Sex: Male

DRUGS (2)
  1. VFEND [Suspect]
     Active Substance: VORICONAZOLE
     Dosage: 600 MG, DAILY (200 MG, TWICE A DAY, THEN 50 MG, TAKING 2 TABLETS, TWICE A DAY)
  2. VFEND [Suspect]
     Active Substance: VORICONAZOLE
     Dosage: 300 MG, 2X/DAY(DAILY TWO TIMES MORNING AND NIGHT)

REACTIONS (2)
  - White blood cell count decreased [Unknown]
  - Overdose [Unknown]
